FAERS Safety Report 4668972-8 (Version None)
Quarter: 2005Q2

REPORT INFORMATION
  Report Type: 
  Country: None (occurrence: None)
  Receive Date: 20050523
  Receipt Date: 20041203
  Transmission Date: 20051028
  Serious: Yes (Other)
  Sender: FDA-Public Use
  Company Number: GB-GLAXOSMITHKLINE-B0361686A

PATIENT
  Sex: Female

DRUGS (3)
  1. PAROXETINE HYDROCHLORIDE [Suspect]
     Indication: ANXIETY
     Route: 065
     Dates: start: 19960401
  2. ANAFRANIL [Concomitant]
  3. CIPRAMIL [Concomitant]

REACTIONS (10)
  - AGGRESSION [None]
  - ANXIETY [None]
  - BINGE EATING [None]
  - DRUG WITHDRAWAL SYNDROME [None]
  - EARLY MORNING AWAKENING [None]
  - FATIGUE [None]
  - MOOD SWINGS [None]
  - OVERDOSE [None]
  - PANIC ATTACK [None]
  - SUICIDAL IDEATION [None]
